FAERS Safety Report 8924706 (Version 1)
Quarter: 2012Q4

REPORT INFORMATION
  Report Type: 
  Country: US (occurrence: US)
  Receive Date: 20121126
  Receipt Date: 20121126
  Transmission Date: 20130627
  Serious: Yes (Other)
  Sender: FDA-Public Use
  Company Number: US-009507513-2010SP020840

PATIENT

DRUGS (4)
  1. NUVARING [Suspect]
     Indication: CONTRACEPTION
     Dates: start: 20050222, end: 200711
  2. NUVARING [Suspect]
     Dates: start: 200712, end: 20080805
  3. RISPERIDONE [Concomitant]
     Indication: MENTAL DISORDER
     Dates: start: 2004, end: 2007
  4. ZOLOFT [Concomitant]
     Indication: MENTAL DISORDER
     Dates: start: 2004, end: 2007

REACTIONS (5)
  - Deep vein thrombosis [Unknown]
  - Thrombophlebitis [Unknown]
  - Chest pain [Unknown]
  - Abdominal pain [Unknown]
  - Vaginal discharge [Unknown]
